FAERS Safety Report 5152678-5 (Version None)
Quarter: 2006Q4

REPORT INFORMATION
  Report Type: 
  Country: None (occurrence: None)
  Receive Date: 20061109
  Receipt Date: 20061024
  Transmission Date: 20070319
  Serious: Yes (Death, Hospitalization)
  Sender: FDA-Public Use
  Company Number: 2006002045

PATIENT
  Sex: Female

DRUGS (1)
  1. TARCEVA [Suspect]
     Dosage: ORAL
     Route: 048

REACTIONS (5)
  - GENERAL PHYSICAL HEALTH DETERIORATION [None]
  - LUNG DISORDER [None]
  - OXYGEN SATURATION DECREASED [None]
  - TACHYCARDIA [None]
  - TACHYPNOEA [None]
